FAERS Safety Report 5743094-3 (Version None)
Quarter: 2008Q2

REPORT INFORMATION
  Report Type: 
  Country: None (occurrence: None)
  Receive Date: 20080519
  Receipt Date: 20080507
  Transmission Date: 20081010
  Serious: Yes (Death, Other)
  Sender: FDA-Public Use
  Company Number: US-ELI_LILLY_AND_COMPANY-US200712004693

PATIENT
  Sex: Female

DRUGS (13)
  1. CYMBALTA [Suspect]
     Indication: DEPRESSION
     Dosage: 30 MG, UNK
     Dates: start: 20070703, end: 20070101
  2. CYMBALTA [Suspect]
     Dosage: 60 MG, DAILY (1/D)
     Dates: start: 20070101, end: 20070101
  3. CYMBALTA [Suspect]
     Dosage: 90 MG, DAILY (1/D)
     Dates: start: 20070101, end: 20070101
  4. CYMBALTA [Suspect]
     Dosage: 120 MG, UNK
     Dates: start: 20071003
  5. RISPERDAL [Concomitant]
     Indication: SLEEP DISORDER
     Dosage: 3 MG, EACH EVENING
  6. RISPERDAL [Concomitant]
     Dosage: 2 MG, EACH EVENING
  7. ACTONEL [Concomitant]
     Dosage: 35 MG, UNK
  8. PROTONIX [Concomitant]
  9. LIBRAX [Concomitant]
     Dosage: 5/2.5 MG
  10. AVELOX [Concomitant]
  11. CALCIUM [Concomitant]
     Dosage: 600 MG, UNK
  12. VITAMIN D [Concomitant]
     Dosage: 2000 U, UNK
  13. DEXAMETHASONE [Concomitant]
     Dosage: 0.5 MG, EVERY 6 HOURS

REACTIONS (14)
  - ANXIETY [None]
  - COMPLETED SUICIDE [None]
  - CONSTIPATION [None]
  - CYST [None]
  - DEPRESSED MOOD [None]
  - FATIGUE [None]
  - FLAT AFFECT [None]
  - HAIR TEXTURE ABNORMAL [None]
  - IRRITABILITY [None]
  - MICTURITION URGENCY [None]
  - OSTEOPOROSIS [None]
  - PITUITARY TUMOUR [None]
  - SOCIAL PROBLEM [None]
  - WEIGHT DECREASED [None]
